FAERS Safety Report 21267220 (Version 11)
Quarter: 2024Q3

REPORT INFORMATION
  Report Type: Spontaneous
  Country: US (occurrence: US)
  Receive Date: 20220829
  Receipt Date: 20240718
  Transmission Date: 20241016
  Serious: Yes (Death, Hospitalization, Other)
  Sender: DAIICHI
  Company Number: US-DSJP-DSU-2022-131157AA

PATIENT
  Sex: Female
  Weight: 61.678 kg

DRUGS (3)
  1. TURALIO [Suspect]
     Active Substance: PEXIDARTINIB HYDROCHLORIDE
     Indication: Giant cell tumour of tendon sheath
     Dosage: 400 MG, BID
     Route: 048
     Dates: start: 20220818, end: 202301
  2. TURALIO [Suspect]
     Active Substance: PEXIDARTINIB HYDROCHLORIDE
     Indication: Giant cell tumour of tendon sheath
  3. TURALIO [Suspect]
     Active Substance: PEXIDARTINIB HYDROCHLORIDE
     Indication: Synovitis

REACTIONS (20)
  - Metastasis [Fatal]
  - Chest pain [Fatal]
  - Muscular weakness [Fatal]
  - Diarrhoea [Fatal]
  - Metastases to central nervous system [Fatal]
  - Metastases to lung [Fatal]
  - Anaemia [Fatal]
  - Mediastinal mass [Fatal]
  - Splenic rupture [Fatal]
  - Haemorrhagic ascites [Unknown]
  - Lethargy [Unknown]
  - Asthenia [Unknown]
  - Muscle strain [Not Recovered/Not Resolved]
  - Mobility decreased [Not Recovered/Not Resolved]
  - Muscle tightness [Not Recovered/Not Resolved]
  - Chapped lips [Not Recovered/Not Resolved]
  - Nausea [Not Recovered/Not Resolved]
  - Rash [Recovering/Resolving]
  - Rash [Recovering/Resolving]
  - Rash [Recovering/Resolving]

NARRATIVE: CASE EVENT DATE: 20220101
